FAERS Safety Report 5429225-3 (Version None)
Quarter: 2007Q3

REPORT INFORMATION
  Report Type: 
  Country: None (occurrence: None)
  Receive Date: 20070827
  Receipt Date: 20070827
  Transmission Date: 20080115
  Serious: No
  Sender: FDA-Public Use
  Company Number: None

PATIENT
  Age: 74 Year
  Sex: Female
  Weight: 52.1637 kg

DRUGS (1)
  1. CEPHALEXIN [Suspect]
     Indication: CHRONIC SINUSITIS
     Dosage: 500MG 4 DAILY PO
     Route: 048
     Dates: start: 20070817, end: 20070823

REACTIONS (7)
  - LIP SWELLING [None]
  - OEDEMA MUCOSAL [None]
  - ORAL DISORDER [None]
  - ORAL MUCOSAL BLISTERING [None]
  - ORAL PAIN [None]
  - PHARYNGEAL DISORDER [None]
  - SKIN EXFOLIATION [None]
